FAERS Safety Report 8819844 (Version 1)
Quarter: 2012Q4

REPORT INFORMATION
  Report Type: 
  Country: US (occurrence: US)
  Receive Date: 20121002
  Receipt Date: 20121002
  Transmission Date: 20130627
  Serious: No
  Sender: FDA-Public Use
  Company Number: US-009507513-1210USA000424

PATIENT
  Sex: Female

DRUGS (6)
  1. VICTRELIS [Suspect]
     Indication: HEPATITIS C
     Dosage: 4 DF, q8h
     Route: 048
  2. RIBASPHERE [Concomitant]
  3. PEGASYS [Concomitant]
  4. AMBIEN [Concomitant]
  5. VALIUM [Concomitant]
  6. CLIMARA PRO [Concomitant]

REACTIONS (5)
  - Psoriasis [Unknown]
  - Sleep disorder [Unknown]
  - Fatigue [Unknown]
  - Pruritus [Unknown]
  - Depression [Unknown]
